FAERS Safety Report 9119475 (Version 3)
Quarter: 2013Q3

REPORT INFORMATION
  Report Type: Spontaneous
  Country: US (occurrence: US)
  Receive Date: 20130207
  Receipt Date: 20130717
  Transmission Date: 20140515
  Serious: Yes (Other)
  Sender: FDA-Public Use
  Company Number: US-PFIZER INC-2013049251

PATIENT
  Age: 72 Year
  Sex: Male
  Weight: 90.7 kg

DRUGS (6)
  1. VIAGRA [Suspect]
     Indication: ERECTILE DYSFUNCTION
     Dosage: 50 MG, AS NEEDED (ONCE EVERY THREE OR FOUR WEEKS)
     Route: 048
  2. ASPIRIN [Concomitant]
     Indication: BLOOD PRESSURE ABNORMAL
     Dosage: 81 MG, UNK
  3. LISINOPRIL [Concomitant]
     Indication: BLOOD PRESSURE ABNORMAL
     Dosage: 5 MG, 1X/DAY
  4. BYSTOLIC [Concomitant]
     Dosage: 5 MG, UNK
  5. CRESTOR [Concomitant]
     Indication: BLOOD CHOLESTEROL INCREASED
     Dosage: UNK
  6. LAMISIL [Concomitant]
     Dosage: UNK

REACTIONS (4)
  - Visual acuity reduced [Unknown]
  - Deafness [Unknown]
  - Dizziness [Unknown]
  - Flushing [Unknown]
